FAERS Safety Report 7832140-9 (Version None)
Quarter: 2011Q4

REPORT INFORMATION
  Report Type: 
  Country: None (occurrence: None)
  Receive Date: 20111022
  Receipt Date: 20111015
  Transmission Date: 20120403
  Serious: Yes (Other)
  Sender: FDA-Public Use
  Company Number: US-BAYER-2011-101559

PATIENT
  Age: 70 Year
  Sex: Male

DRUGS (1)
  1. NAPROXEN (ALEVE) [Suspect]
     Indication: ARTHRITIS
     Dosage: 2 DF, UNK
     Route: 048
     Dates: start: 20111001

REACTIONS (3)
  - DIARRHOEA [None]
  - INTESTINAL HAEMORRHAGE [None]
  - HAEMATOCHEZIA [None]
